FAERS Safety Report 6304108-5 (Version None)
Quarter: 2009Q3

REPORT INFORMATION
  Report Type: 
  Country: None (occurrence: None)
  Receive Date: 20090806
  Receipt Date: 20090723
  Transmission Date: 20100115
  Serious: Yes (Hospitalization, Other)
  Sender: FDA-Public Use
  Company Number: CERZ-1000756

PATIENT
  Age: 9 Year
  Sex: Female
  Weight: 24.1 kg

DRUGS (1)
  1. CEREZYME [Suspect]
     Indication: GAUCHER'S DISEASE
     Dosage: 2000 U, Q2W, INTRAVENOUS
     Route: 042
     Dates: start: 20080601

REACTIONS (2)
  - DISEASE RECURRENCE [None]
  - NON-HODGKIN'S LYMPHOMA [None]
